FAERS Safety Report 12517234 (Version 1)
Quarter: 2016Q2

REPORT INFORMATION
  Report Type: Spontaneous
  Country: US (occurrence: US)
  Receive Date: 20160630
  Receipt Date: 20160630
  Transmission Date: 20160815
  Serious: No
  Sender: FDA-Public Use
  Company Number: US-009507513-1606USA013532

PATIENT
  Sex: Male

DRUGS (1)
  1. SINGULAIR [Suspect]
     Active Substance: MONTELUKAST SODIUM
     Dosage: PATIENT IS CHEWING THE TABLET THEN SWALLOWING IT
     Route: 048

REACTIONS (2)
  - Dysgeusia [Unknown]
  - Product taste abnormal [Unknown]
